FAERS Safety Report 6864122-8 (Version None)
Quarter: 2010Q3

REPORT INFORMATION
  Report Type: 
  Country: None (occurrence: None)
  Receive Date: 20100721
  Receipt Date: 20100707
  Transmission Date: 20110219
  Serious: Yes (Hospitalization)
  Sender: FDA-Public Use
  Company Number: JP-AMGEN-KDC417781

PATIENT
  Sex: Male

DRUGS (23)
  1. ARANESP [Suspect]
     Indication: RENAL FAILURE CHRONIC
     Route: 042
     Dates: start: 20080704
  2. ARANESP [Suspect]
     Route: 042
     Dates: start: 20080801, end: 20080815
  3. ARANESP [Suspect]
     Route: 042
     Dates: start: 20080829, end: 20090102
  4. ARANESP [Suspect]
     Route: 042
     Dates: start: 20090116, end: 20090227
  5. ARANESP [Suspect]
     Route: 042
     Dates: start: 20090306, end: 20090313
  6. ARANESP [Suspect]
     Route: 042
     Dates: start: 20090327, end: 20090410
  7. ARANESP [Suspect]
     Route: 042
     Dates: start: 20090417, end: 20090508
  8. ARANESP [Suspect]
     Route: 042
     Dates: start: 20090515, end: 20090605
  9. ARANESP [Suspect]
     Route: 042
     Dates: start: 20090612, end: 20090619
  10. ARANESP [Suspect]
     Route: 042
     Dates: start: 20090626
  11. SEVELAMER HCL [Concomitant]
     Route: 048
  12. CALCIUM CARBONATE [Concomitant]
     Route: 048
  13. VITAMEDIN [Concomitant]
     Route: 048
  14. AMLODIN OD [Concomitant]
     Route: 048
  15. MEVALOTIN [Concomitant]
     Route: 048
  16. GASTER D [Concomitant]
     Route: 048
  17. ZYRTEC [Concomitant]
     Route: 048
  18. SENNOSIDE [Concomitant]
     Route: 048
  19. RISUMIC [Concomitant]
     Route: 048
  20. BUFFERIN [Concomitant]
     Route: 048
  21. CALCITRIOL [Concomitant]
     Route: 048
  22. INSULIN HUMAN [Concomitant]
     Route: 058
  23. PROMAC [Concomitant]
     Route: 048

REACTIONS (1)
  - GASTROINTESTINAL TELANGIECTASIA [None]
